FAERS Safety Report 12174347 (Version 1)
Quarter: 2016Q1

REPORT INFORMATION
  Report Type: Report from Study
  Country: US (occurrence: US)
  Receive Date: 20160312
  Receipt Date: 20160312
  Transmission Date: 20160526
  Serious: Yes (Other)
  Sender: FDA-Public Use
  Company Number: US-ACCORD-038683

PATIENT
  Age: 50 Year

DRUGS (2)
  1. ARA-C (DEPOCYT) [Concomitant]
     Indication: CHRONIC MYELOID LEUKAEMIA
     Dates: start: 201305, end: 201307
  2. METHOTREXATE [Suspect]
     Active Substance: METHOTREXATE
     Indication: CHRONIC MYELOID LEUKAEMIA
     Route: 037
     Dates: start: 201305, end: 201307

REACTIONS (1)
  - Myelopathy [Not Recovered/Not Resolved]

NARRATIVE: CASE EVENT DATE: 201307
